FAERS Safety Report 13416411 (Version 1)
Quarter: 2017Q2

REPORT INFORMATION
  Report Type: Spontaneous
  Country: DE (occurrence: DE)
  Receive Date: 20170407
  Receipt Date: 20170407
  Transmission Date: 20170830
  Serious: Yes (Other)
  Sender: FDA-Public Use
  Company Number: DE-TEVA-756329GER

PATIENT
  Age: 1 Day
  Sex: Male

DRUGS (6)
  1. FOLSAEURE ABZ [Concomitant]
     Indication: PROPHYLAXIS OF NEURAL TUBE DEFECT
     Dosage: 5 MILLIGRAM DAILY;
     Route: 064
  2. VENLAFAXINE [Suspect]
     Active Substance: VENLAFAXINE HYDROCHLORIDE
     Dosage: 75 MILLIGRAM DAILY; 225 (MG/D)/ INITIAL 225MG/D, DOSAGE REDUCTION TO 75MG/D
     Route: 064
     Dates: end: 20160816
  3. VENLAFAXINE [Suspect]
     Active Substance: VENLAFAXINE HYDROCHLORIDE
     Indication: DEPRESSION
     Dosage: 225 MILLIGRAM DAILY; 225 (MG/D)/ INITIAL 225MG/D, DOSAGE REDUCTION TO 75MG/D
     Route: 064
     Dates: start: 20151112
  4. QUETIAPINE. [Suspect]
     Active Substance: QUETIAPINE
     Indication: DEPRESSION
     Dosage: 100 MILLIGRAM DAILY; 100 (MG/D)/ INITIAL 100MG/D, DOSAGE REDUCTION TO 25MG/D
     Route: 064
     Dates: start: 20151112
  5. QUETIAPINE. [Suspect]
     Active Substance: QUETIAPINE
     Dosage: 25 MILLIGRAM DAILY; 100 (MG/D)/ INITIAL 100MG/D, DOSAGE REDUCTION TO 25MG/D
     Route: 064
     Dates: end: 20160816
  6. PENICILLIN NOS [Concomitant]
     Active Substance: PENICILLIN
     Indication: PNEUMONIA
     Route: 064
     Dates: start: 20160411, end: 20160417

REACTIONS (3)
  - Drug withdrawal syndrome neonatal [Recovered/Resolved]
  - Hypertonia neonatal [Recovering/Resolving]
  - Bradycardia neonatal [Recovered/Resolved]

NARRATIVE: CASE EVENT DATE: 20160816
